FAERS Safety Report 7121805-2 (Version None)
Quarter: 2010Q4

REPORT INFORMATION
  Report Type: 
  Country: None (occurrence: None)
  Receive Date: 20101124
  Receipt Date: 20101116
  Transmission Date: 20110411
  Serious: Yes (Hospitalization)
  Sender: FDA-Public Use
  Company Number: JP-ROCHE-738091

PATIENT
  Sex: Male
  Weight: 48 kg

DRUGS (6)
  1. AVASTIN [Suspect]
     Indication: LUNG ADENOCARCINOMA METASTATIC
     Route: 041
     Dates: start: 20100826, end: 20100916
  2. DIOVAN [Suspect]
     Indication: HYPERTENSION
     Route: 048
     Dates: start: 20100824, end: 20101015
  3. PACLITAXEL [Concomitant]
     Route: 041
  4. PACLITAXEL [Concomitant]
     Dosage: DOSAGE IS UNCERTAIN.
     Route: 041
  5. CARBOPLATIN [Concomitant]
     Route: 041
     Dates: start: 20100826, end: 20100826
  6. CARBOPLATIN [Concomitant]
     Route: 041
     Dates: start: 20100916, end: 20100916

REACTIONS (2)
  - CONVULSION [None]
  - LOSS OF CONSCIOUSNESS [None]
